FAERS Safety Report 8730382 (Version 2)
Quarter: 2013Q2

REPORT INFORMATION
  Report Type: Spontaneous
  Country: ES (occurrence: ES)
  Receive Date: 20120817
  Receipt Date: 20130416
  Transmission Date: 20140414
  Serious: Yes (Death)
  Sender: FDA-Public Use
  Company Number: PHHY2012ES070739

PATIENT
  Age: 68 Year
  Sex: Male

DRUGS (5)
  1. DOXORUBICIN [Suspect]
     Indication: SPLENIC MARGINAL ZONE LYMPHOMA
  2. CYCLOPHOSPHAMIDE [Suspect]
     Indication: SPLENIC MARGINAL ZONE LYMPHOMA
  3. VINCRISTINE [Suspect]
     Indication: SPLENIC MARGINAL ZONE LYMPHOMA
  4. PREDNISONE [Suspect]
     Indication: IMMUNOSUPPRESSION
  5. RITUXIMAB [Suspect]
     Indication: SPLENIC MARGINAL ZONE LYMPHOMA

REACTIONS (1)
  - Hepatitis B [Fatal]
